FAERS Safety Report 6189626-5 (Version None)
Quarter: 2009Q2

REPORT INFORMATION
  Report Type: 
  Country: None (occurrence: None)
  Receive Date: 20090512
  Receipt Date: 20090512
  Transmission Date: 20091009
  Serious: Yes (Hospitalization, Other)
  Sender: FDA-Public Use
  Company Number: None

PATIENT
  Age: 33 Year
  Sex: Female
  Weight: 51.2565 kg

DRUGS (3)
  1. TRILEPTAL [Suspect]
     Indication: AFFECTIVE DISORDER
     Dosage: 900MG TO 1200MG DAILY PO
     Route: 048
     Dates: start: 20070101, end: 20081220
  2. WELLBUTRIN SR [Concomitant]
  3. KLONOPIN [Concomitant]

REACTIONS (6)
  - CONFUSIONAL STATE [None]
  - HYPERTENSION [None]
  - HYPONATRAEMIA [None]
  - MALAISE [None]
  - MUSCLE SPASMS [None]
  - VOMITING [None]
